FAERS Safety Report 8803326 (Version 3)
Quarter: 2013Q2

REPORT INFORMATION
  Report Type: Spontaneous
  Country: US (occurrence: US)
  Receive Date: 20120924
  Receipt Date: 20130614
  Transmission Date: 20140414
  Serious: Yes (Death, Hospitalization)
  Sender: FDA-Public Use
  Company Number: US-ROCHE-1096359

PATIENT
  Sex: Female

DRUGS (3)
  1. AVASTIN [Suspect]
     Indication: RENAL CANCER
     Route: 065
  2. AVASTIN [Suspect]
     Indication: MALIGNANT URINARY TRACT NEOPLASM
  3. NEXAVAR [Concomitant]

REACTIONS (3)
  - Death [Fatal]
  - Chest pain [Unknown]
  - Disease progression [Unknown]
